FAERS Safety Report 12687474 (Version 1)
Quarter: 2016Q3

REPORT INFORMATION
  Report Type: Spontaneous
  Country: US (occurrence: US)
  Receive Date: 20160825
  Receipt Date: 20160825
  Transmission Date: 20161109
  Serious: No
  Sender: FDA-Public Use
  Company Number: US-GALDERMA-US16003356

PATIENT
  Age: 77 Year
  Sex: Female

DRUGS (8)
  1. ALEVE (NAPROXEN) [Concomitant]
     Indication: PAIN
     Route: 048
  2. LORAZEPAM. [Concomitant]
     Active Substance: LORAZEPAM
     Dosage: 0.5 MG
     Route: 048
  3. CLOBEX [Suspect]
     Active Substance: CLOBETASOL PROPIONATE
     Indication: SKIN BURNING SENSATION
  4. ALTACE (RAMIPRIL) [Concomitant]
     Dosage: 20 MG
     Route: 048
  5. CLOBEX [Suspect]
     Active Substance: CLOBETASOL PROPIONATE
     Indication: PRURITUS
     Dosage: 0.05%
     Route: 061
     Dates: start: 2012, end: 2016
  6. CLOBEX [Suspect]
     Active Substance: CLOBETASOL PROPIONATE
     Indication: ERYTHEMA
  7. GLIPIZIDE. [Concomitant]
     Active Substance: GLIPIZIDE
     Indication: TYPE 2 DIABETES MELLITUS
     Route: 048
  8. VICODIN (HYDROCODONE/ACETAMINOPHEN) [Concomitant]
     Indication: PAIN IN EXTREMITY
     Route: 048

REACTIONS (1)
  - Intentional product use issue [Recovered/Resolved]

NARRATIVE: CASE EVENT DATE: 2012
